FAERS Safety Report 8416856-1 (Version None)
Quarter: 2012Q2

REPORT INFORMATION
  Report Type: 
  Country: None (occurrence: None)
  Receive Date: 20120606
  Receipt Date: 20120531
  Transmission Date: 20120825
  Serious: Yes (Life-Threatening, Hospitalization, Other)
  Sender: FDA-Public Use
  Company Number: BE-ABBOTT-12P-013-0889146-00

PATIENT
  Sex: Female
  Weight: 62 kg

DRUGS (2)
  1. HUMIRA [Suspect]
     Indication: RHEUMATOID ARTHRITIS
     Route: 058
     Dates: start: 20090916, end: 20111111
  2. METHOTREXATE [Concomitant]
     Indication: RHEUMATOID ARTHRITIS
     Dates: start: 20080901

REACTIONS (10)
  - TRANSIENT ISCHAEMIC ATTACK [None]
  - PERICARDIAL HAEMORRHAGE [None]
  - LUNG CANCER METASTATIC [None]
  - GENERAL PHYSICAL CONDITION ABNORMAL [None]
  - FATIGUE [None]
  - EAR PAIN [None]
  - HEARING IMPAIRED [None]
  - COUGH [None]
  - TUMOUR HAEMORRHAGE [None]
  - PULMONARY FUNCTION TEST DECREASED [None]
